FAERS Safety Report 4530052-X (Version None)
Quarter: 2004Q4

REPORT INFORMATION
  Report Type: 
  Country: None (occurrence: None)
  Receive Date: 20041215
  Receipt Date: 20041215
  Transmission Date: 20050328
  Serious: Yes (Hospitalization)
  Sender: FDA-Public Use
  Company Number: None

PATIENT
  Age: 81 Year
  Sex: Female
  Weight: 46.8 kg

DRUGS (12)
  1. TARCEVA [Suspect]
     Indication: NON-SMALL CELL LUNG CANCER
     Dosage: 150 MG   QD   ORAL
     Route: 048
     Dates: start: 20041108, end: 20041121
  2. TARCEVA [Suspect]
     Indication: NON-SMALL CELL LUNG CANCER
     Dosage: 100 MG   2TABS QD   ORAL
     Route: 048
     Dates: start: 20041122, end: 20041210
  3. PREDNISONE [Concomitant]
  4. CARDIZEM [Concomitant]
  5. ISOSORBIDE [Concomitant]
  6. SYNTHROID [Concomitant]
  7. ZOCOR [Concomitant]
  8. LASIX [Concomitant]
  9. FRAGMIN [Concomitant]
  10. ATROVENT [Concomitant]
  11. METOPROLOL [Concomitant]
  12. PROTONIX [Concomitant]

REACTIONS (4)
  - DISEASE PROGRESSION [None]
  - DYSPNOEA [None]
  - DYSPNOEA EXERTIONAL [None]
  - PULMONARY EMBOLISM [None]
